FAERS Safety Report 6163603-2 (Version None)
Quarter: 2009Q2

REPORT INFORMATION
  Report Type: 
  Country: None (occurrence: None)
  Receive Date: 20090422
  Receipt Date: 20090408
  Transmission Date: 20091009
  Serious: Yes (Hospitalization)
  Sender: FDA-Public Use
  Company Number: JP-ROCHE-614062

PATIENT
  Sex: Male
  Weight: 49 kg

DRUGS (12)
  1. PEGASYS [Suspect]
     Indication: HEPATITIS C
     Route: 058
     Dates: start: 20081119, end: 20090128
  2. PEGASYS [Suspect]
     Route: 058
     Dates: start: 20090212, end: 20090201
  3. PEGASYS [Suspect]
     Route: 058
     Dates: start: 20090226
  4. COPEGUS [Suspect]
     Indication: HEPATITIS C
     Route: 048
     Dates: start: 20081119, end: 20090129
  5. COPEGUS [Suspect]
     Route: 048
     Dates: start: 20090212
  6. DEPAS [Concomitant]
     Dosage: ORAL FORMULATION (NOT OTHERWISE SPECIFIED)
     Route: 048
  7. BLOPRESS [Concomitant]
     Route: 048
  8. URSO 250 [Concomitant]
     Dosage: FORM: ORAL FORMULATION (NOS)
     Route: 048
  9. TAKEPRON [Concomitant]
     Route: 048
  10. WYPAX [Concomitant]
     Route: 048
  11. CONIEL [Concomitant]
     Route: 048
  12. MAGLAX [Concomitant]
     Dosage: FORM: ORAL FORMULATION (NOS)
     Route: 048

REACTIONS (1)
  - SPINAL CORD INFARCTION [None]
